FAERS Safety Report 4821754-6 (Version None)
Quarter: 2005Q4

REPORT INFORMATION
  Report Type: 
  Country: None (occurrence: None)
  Receive Date: 20051107
  Receipt Date: 20051031
  Transmission Date: 20060501
  Serious: Yes (Hospitalization)
  Sender: FDA-Public Use
  Company Number: US-BRISTOL-MYERS SQUIBB COMPANY-13161658

PATIENT
  Age: 66 Year
  Sex: Male
  Weight: 74 kg

DRUGS (3)
  1. CETUXIMAB [Suspect]
     Indication: PANCREATIC CARCINOMA
     Dosage: INITIAL TX DATE: 10-OCT-05 WITH 400 MG/M2, LOADING DOSE. TOTAL DOSE ADM THIS COURSE: 468MG.
     Route: 042
     Dates: start: 20051017, end: 20051017
  2. DOCETAXEL [Suspect]
     Indication: PANCREATIC CARCINOMA
     Dosage: INITIAL TX DATE: 10-OCT-05. TOTAL DOSE ADM THIS COURSE: 65MG.
     Route: 042
     Dates: start: 20051017, end: 20051017
  3. IRINOTECAN HCL [Suspect]
     Indication: PANCREATIC CARCINOMA
     Dosage: INITIAL TX DATE: 10-OCT-05. TOTAL DOSE ADM THIS COURSE: 94 MG.
     Route: 042
     Dates: start: 20051017, end: 20051017

REACTIONS (3)
  - DIVERTICULITIS [None]
  - NAUSEA [None]
  - VOMITING [None]
